FAERS Safety Report 25862247 (Version 1)
Quarter: 2025Q3

REPORT INFORMATION
  Report Type: Spontaneous
  Country: GB (occurrence: GB)
  Receive Date: 20250930
  Receipt Date: 20250930
  Transmission Date: 20251020
  Serious: Yes (Disabling, Other)
  Sender: TORRENT PHARMA INC.
  Company Number: None

PATIENT
  Age: 36 Year
  Sex: Male
  Weight: 79 kg

DRUGS (2)
  1. QUETIAPINE [Suspect]
     Active Substance: QUETIAPINE
     Indication: Anxiety
     Route: 065
     Dates: end: 20241031
  2. FLUVOXAMINE [Suspect]
     Active Substance: FLUVOXAMINE
     Indication: Anxiety
     Route: 065
     Dates: start: 2020

REACTIONS (3)
  - Sexual dysfunction [Not Recovered/Not Resolved]
  - Oligodipsia [Not Recovered/Not Resolved]
  - Suicidal ideation [Not Recovered/Not Resolved]

NARRATIVE: CASE EVENT DATE: 20241003
